FAERS Safety Report 5555980-8 (Version None)
Quarter: 2007Q4

REPORT INFORMATION
  Report Type: 
  Country: None (occurrence: None)
  Receive Date: 20071213
  Receipt Date: 20071201
  Transmission Date: 20080405
  Serious: Yes (Other)
  Sender: FDA-Public Use
  Company Number: US-PFIZER INC-2007102437

PATIENT
  Sex: Female

DRUGS (3)
  1. CHANTIX [Suspect]
     Indication: SMOKING CESSATION THERAPY
     Dates: start: 20070101, end: 20071130
  2. NEURONTIN [Concomitant]
     Indication: ROAD TRAFFIC ACCIDENT
  3. METHADONE HCL [Concomitant]
     Indication: ROAD TRAFFIC ACCIDENT

REACTIONS (10)
  - ABNORMAL BEHAVIOUR [None]
  - AGITATION [None]
  - ANXIETY [None]
  - MENTAL DISORDER [None]
  - MUSCLE CONTRACTURE [None]
  - NIGHTMARE [None]
  - PERSONALITY CHANGE [None]
  - SCREAMING [None]
  - SLEEP TERROR [None]
  - SUICIDAL IDEATION [None]
